FAERS Safety Report 11983740 (Version 1)
Quarter: 2016Q1

REPORT INFORMATION
  Report Type: Spontaneous
  Country: US (occurrence: US)
  Receive Date: 20160201
  Receipt Date: 20160201
  Transmission Date: 20160526
  Serious: No
  Sender: FDA-Public Use
  Company Number: US-JNJFOC-20160100607

PATIENT
  Age: 28 Year
  Sex: Female
  Weight: 65.77 kg

DRUGS (2)
  1. VISINE A [Suspect]
     Active Substance: NAPHAZOLINE HYDROCHLORIDE\PHENIRAMINE MALEATE
     Route: 047
  2. VISINE A [Suspect]
     Active Substance: NAPHAZOLINE HYDROCHLORIDE\PHENIRAMINE MALEATE
     Indication: EYE ALLERGY
     Dosage: ONE DROP IN HER LEFT EYE, ONCE
     Route: 047
     Dates: start: 20160102, end: 20160102

REACTIONS (4)
  - Wrong technique in product usage process [Unknown]
  - Mydriasis [Unknown]
  - Discomfort [Unknown]
  - Eye irritation [Unknown]
